FAERS Safety Report 21560745 (Version 5)
Quarter: 2023Q1

REPORT INFORMATION
  Report Type: Report from Study
  Country: TR (occurrence: TR)
  Receive Date: 20221107
  Receipt Date: 20230207
  Transmission Date: 20230418
  Serious: Yes (Other)
  Sender: FDA-Public Use
  Company Number: TR-ABBVIE-4187642

PATIENT
  Age: 78 Year
  Sex: Male
  Weight: 70 kg

DRUGS (4)
  1. CARBIDOPA\LEVODOPA [Suspect]
     Active Substance: CARBIDOPA\LEVODOPA
     Indication: Parkinson^s disease
     Dosage: MORNING DOSE (ML): 9.30 CONTINUOUS DOSE (ML): 5.00 EXTRA DOSE (ML): 1.50
     Route: 050
     Dates: start: 20221028, end: 20221104
  2. CARBIDOPA\LEVODOPA [Suspect]
     Active Substance: CARBIDOPA\LEVODOPA
     Dosage: MORNING DOSE (ML): 9.60 CONTINUOUS DOSE (ML): 5.40 EXTRA DOSE (ML): 1.50
     Route: 050
     Dates: start: 20221104, end: 20221116
  3. CARBIDOPA\LEVODOPA [Suspect]
     Active Substance: CARBIDOPA\LEVODOPA
     Dosage: MORNING DOSE (ML): 9.60 CONTINUOUS DOSE (ML): 5.80 EXTRA DOSE (ML): 1.50
     Route: 050
     Dates: start: 20221116
  4. MADOPAR HBS 125 mg [Concomitant]
     Indication: Parkinson^s disease
     Route: 048

REACTIONS (4)
  - C-reactive protein increased [Not Recovered/Not Resolved]
  - Device dislocation [Unknown]
  - Stoma site discharge [Recovered/Resolved]
  - Bradykinesia [Recovered/Resolved]

NARRATIVE: CASE EVENT DATE: 20221031
